FAERS Safety Report 19716540 (Version 1)
Quarter: 2021Q3

REPORT INFORMATION
  Report Type: Report from Study
  Country: US (occurrence: US)
  Receive Date: 20210818
  Receipt Date: 20210818
  Transmission Date: 20211014
  Serious: Yes (Hospitalization)
  Sender: FDA-Public Use
  Company Number: US-EMD SERONO-9258417

PATIENT
  Age: 58 Year
  Sex: Male

DRUGS (1)
  1. REBIF [Suspect]
     Active Substance: INTERFERON BETA-1A
     Indication: MULTIPLE SCLEROSIS
     Route: 058
     Dates: start: 1998

REACTIONS (6)
  - Treatment noncompliance [Unknown]
  - Hypoaesthesia [Unknown]
  - Injection site infection [Unknown]
  - Gait disturbance [Unknown]
  - Staphylococcal infection [Unknown]
  - Gastrointestinal disorder [Unknown]
